FAERS Safety Report 24646775 (Version 1)
Quarter: 2024Q4

REPORT INFORMATION
  Report Type: Spontaneous
  Country: US (occurrence: US)
  Receive Date: 20241121
  Receipt Date: 20241121
  Transmission Date: 20250115
  Serious: Yes (Other)
  Sender: ALEXION PHARMACEUTICALS
  Company Number: US-ASTRAZENECA-202411USA011968US

PATIENT

DRUGS (12)
  1. FASLODEX [Suspect]
     Active Substance: FULVESTRANT
     Indication: Breast cancer female
  2. FASLODEX [Suspect]
     Active Substance: FULVESTRANT
  3. FASLODEX [Suspect]
     Active Substance: FULVESTRANT
  4. FASLODEX [Suspect]
     Active Substance: FULVESTRANT
  5. IBRANCE [Suspect]
     Active Substance: PALBOCICLIB
     Indication: Breast cancer female
     Dosage: 125 MILLIGRAM
  6. IBRANCE [Suspect]
     Active Substance: PALBOCICLIB
     Dosage: 125 MILLIGRAM
  7. IBRANCE [Suspect]
     Active Substance: PALBOCICLIB
     Dosage: 125 MILLIGRAM
  8. IBRANCE [Suspect]
     Active Substance: PALBOCICLIB
     Dosage: 125 MILLIGRAM
  9. ZOMETA [Concomitant]
     Active Substance: ZOLEDRONIC ACID
  10. ZOMETA [Concomitant]
     Active Substance: ZOLEDRONIC ACID
     Route: 065
  11. MORPHINE [Concomitant]
     Active Substance: MORPHINE
     Indication: Back pain
  12. MORPHINE [Concomitant]
     Active Substance: MORPHINE
     Route: 065

REACTIONS (9)
  - Thrombosis [Unknown]
  - Abdominal pain upper [Unknown]
  - Dyspepsia [Unknown]
  - Influenza like illness [Unknown]
  - Nausea [Not Recovered/Not Resolved]
  - Fatigue [Not Recovered/Not Resolved]
  - Insomnia [Not Recovered/Not Resolved]
  - Product odour abnormal [Unknown]
  - Product taste abnormal [Unknown]
